FAERS Safety Report 8204277-6 (Version None)
Quarter: 2012Q1

REPORT INFORMATION
  Report Type: 
  Country: None (occurrence: None)
  Receive Date: 20120313
  Receipt Date: 20120228
  Transmission Date: 20120608
  Serious: Yes (Congenital Anomaly)
  Sender: FDA-Public Use
  Company Number: GB-MYLANLABS-2012S1004368

PATIENT
  Sex: Male
  Weight: 0.68 kg

DRUGS (1)
  1. LAMOTRIGINE [Suspect]
     Route: 064

REACTIONS (3)
  - FALLOT'S TETRALOGY [None]
  - PREMATURE BABY [None]
  - MATERNAL EXPOSURE DURING PREGNANCY [None]
